FAERS Safety Report 18926526 (Version 2)
Quarter: 2021Q3

REPORT INFORMATION
  Report Type: Spontaneous
  Country: US (occurrence: US)
  Receive Date: 20210223
  Receipt Date: 20210820
  Transmission Date: 20211014
  Serious: No
  Sender: FDA-Public Use
  Company Number: US-SA-2021SA060248

PATIENT
  Age: 53 Year
  Sex: Male

DRUGS (2)
  1. VITAMINS NOS [Concomitant]
     Active Substance: VITAMINS
  2. DUPIXENT [Suspect]
     Active Substance: DUPILUMAB
     Indication: DERMATITIS ATOPIC
     Dosage: 300 MG, QOW
     Route: 058
     Dates: start: 2018

REACTIONS (1)
  - Pruritus [Unknown]
